FAERS Safety Report 10387878 (Version 2)
Quarter: 2014Q3

REPORT INFORMATION
  Report Type: Spontaneous
  Country: US (occurrence: US)
  Receive Date: 20140815
  Receipt Date: 20140926
  Transmission Date: 20150326
  Serious: Yes (Hospitalization, Other)
  Sender: FDA-Public Use
  Company Number: US-BAYER-2014-122138

PATIENT
  Age: 29 Year
  Sex: Female
  Weight: 65.76 kg

DRUGS (4)
  1. SYNTHROID [Concomitant]
     Active Substance: LEVOTHYROXINE SODIUM
     Indication: HYPOTHYROIDISM
     Dosage: 125 MCG, UNK
     Dates: start: 201101
  2. LEVOXYL [Concomitant]
     Active Substance: LEVOTHYROXINE SODIUM
     Indication: HYPOTHYROIDISM
     Dosage: 125 MCG
     Dates: start: 201101
  3. MIRENA [Suspect]
     Active Substance: LEVONORGESTREL
     Dosage: 20 MCG/24HR, CONT
     Route: 015
     Dates: start: 20111017, end: 20121116
  4. BUPROPION [Concomitant]
     Active Substance: BUPROPION
     Indication: POSTPARTUM DEPRESSION
     Dosage: 300 MG, UNK
     Dates: start: 201012

REACTIONS (8)
  - Device dislocation [None]
  - Urinary retention [None]
  - Injury [None]
  - Device issue [None]
  - Procedural pain [Not Recovered/Not Resolved]
  - Pain [None]
  - Emotional distress [None]
  - Device difficult to use [None]

NARRATIVE: CASE EVENT DATE: 201203
